FAERS Safety Report 25038232 (Version 4)
Quarter: 2025Q1

REPORT INFORMATION
  Report Type: Spontaneous
  Country: US (occurrence: US)
  Receive Date: 20250304
  Receipt Date: 20250318
  Transmission Date: 20250409
  Serious: Yes (Other)
  Sender: PFIZER
  Company Number: US-PFIZER INC-202500046978

PATIENT
  Age: 71 Year
  Sex: Female
  Weight: 73.94 kg

DRUGS (3)
  1. PAXLOVID [Suspect]
     Active Substance: NIRMATRELVIR\RITONAVIR
     Indication: COVID-19 treatment
     Dates: start: 20250211, end: 20250215
  2. LINZESS [Suspect]
     Active Substance: LINACLOTIDE
     Indication: Constipation
     Dates: start: 202412, end: 20250220
  3. LINZESS [Suspect]
     Active Substance: LINACLOTIDE
     Indication: Irritable bowel syndrome

REACTIONS (12)
  - Deafness [Unknown]
  - Rash pruritic [Recovering/Resolving]
  - Rash papular [Recovering/Resolving]
  - Ear swelling [Unknown]
  - Feeling hot [Unknown]
  - Ear pain [Unknown]
  - Urticaria [Recovering/Resolving]
  - Rash morbilliform [Recovering/Resolving]
  - Drug eruption [Recovering/Resolving]
  - Constipation [Unknown]
  - Blister [Unknown]
  - Thinking abnormal [Unknown]

NARRATIVE: CASE EVENT DATE: 20250101
